FAERS Safety Report 20454426 (Version 1)
Quarter: 2022Q1

REPORT INFORMATION
  Report Type: Spontaneous
  Country: US (occurrence: None)
  Receive Date: 20220209
  Receipt Date: 20220209
  Transmission Date: 20220424
  Serious: Yes (Hospitalization)
  Sender: FDA-Public Use
  Company Number: None

PATIENT
  Age: 11 Year
  Sex: Male
  Weight: 36.7 kg

DRUGS (15)
  1. REMDESIVIR [Suspect]
     Active Substance: REMDESIVIR
     Indication: COVID-19
     Dosage: FREQUENCY : ONCE;?
     Route: 042
     Dates: start: 20220118, end: 20220118
  2. REMDESIVIR [Suspect]
     Active Substance: REMDESIVIR
     Indication: COVID-19
     Dosage: FREQUENCY : DAILY;?
     Route: 042
     Dates: start: 20220119, end: 20220120
  3. Nelarabine 750 mg daily [Concomitant]
     Dates: start: 20220124, end: 20220128
  4. Cyclophosphamide 1200 mg [Concomitant]
     Dates: start: 20220131, end: 20220131
  5. Cytarabine 90 mg daily [Concomitant]
     Dates: start: 20220131, end: 20220209
  6. Mercaptopurine 72 mg daily [Concomitant]
     Dates: start: 20220131, end: 20220209
  7. METHOTREXATE [Concomitant]
     Active Substance: METHOTREXATE
     Dates: start: 20211227, end: 20211227
  8. Vincristine 1.8mg weekly [Concomitant]
     Dates: start: 20211227, end: 20220103
  9. Pegaspargase 3000 iu once [Concomitant]
     Dates: start: 20211227, end: 20211227
  10. Fosaprepitant 120 mg once [Concomitant]
     Dates: start: 20220131, end: 20220131
  11. Amlodipine 10mg daily [Concomitant]
     Dates: start: 20211117, end: 20220209
  12. Hydrochlorothiazide 12.5 mg daily [Concomitant]
     Dates: start: 20211204, end: 20220209
  13. Sertraline 50 mg daily [Concomitant]
     Dates: start: 20211105, end: 20220209
  14. Bactrim 100mg TMP component BID on Saturday and Sundays [Concomitant]
     Dates: start: 20211106, end: 20220209
  15. Esomeprazole 40mg daily [Concomitant]
     Dates: start: 20220124, end: 20220209

REACTIONS (9)
  - Alanine aminotransferase increased [None]
  - Aspartate aminotransferase increased [None]
  - Anaemia [None]
  - Thrombocytopenia [None]
  - Urine abnormality [None]
  - CSF red blood cell count positive [None]
  - Subarachnoid haemorrhage [None]
  - Rathke^s cleft cyst [None]
  - Pituitary haemorrhage [None]

NARRATIVE: CASE EVENT DATE: 20220207
